FAERS Safety Report 7083899-2 (Version None)
Quarter: 2010Q4

REPORT INFORMATION
  Report Type: 
  Country: None (occurrence: None)
  Receive Date: 20101104
  Receipt Date: 20091201
  Transmission Date: 20110411
  Serious: No
  Sender: FDA-Public Use
  Company Number: US-ABBOTT-09P-163-0612658-00

PATIENT
  Sex: Female
  Weight: 55.842 kg

DRUGS (4)
  1. KALETRA [Suspect]
     Indication: CD4 LYMPHOCYTES INCREASED
     Dosage: 200/50MG
     Dates: start: 20091117
  2. RALTEGRAVIR [Suspect]
     Indication: CD4 LYMPHOCYTES INCREASED
     Dates: start: 20091117
  3. MARAVIROC [Suspect]
     Indication: CD4 LYMPHOCYTES INCREASED
     Dates: start: 20091117
  4. LISINOPRIL [Concomitant]
     Indication: PRODUCT USED FOR UNKNOWN INDICATION
     Dates: start: 20091101

REACTIONS (4)
  - ASTHENIA [None]
  - HOT FLUSH [None]
  - NAUSEA [None]
  - WEIGHT DECREASED [None]
